FAERS Safety Report 10659760 (Version 5)
Quarter: 2015Q1

REPORT INFORMATION
  Report Type: Spontaneous
  Country: FR (occurrence: FR)
  Receive Date: 20141217
  Receipt Date: 20150310
  Transmission Date: 20150720
  Serious: Yes (Other)
  Sender: FDA-Public Use
  Company Number: FR-PFIZER INC-2014344413

PATIENT
  Age: 57 Year
  Sex: Female

DRUGS (20)
  1. INEXIUM 40 [Concomitant]
     Dosage: 1 DF, 2X/DAY (1 DF IN THE MORNING AND 1 DF IN THE EVENING)
  2. SINGULAIR [Concomitant]
     Active Substance: MONTELUKAST SODIUM
     Dosage: 1 DF, 1X/DAY (IN THE EVENING)
  3. AMLOR 5 [Concomitant]
     Dosage: 1 DF, 1X/DAY (IN THE MORNING)
  4. ABUFENE [Concomitant]
  5. VFEND [Suspect]
     Active Substance: VORICONAZOLE
     Indication: FUSARIUM INFECTION
     Dosage: 200 MG, 2X/DAY
     Dates: start: 20141119, end: 201412
  6. DIFFU K [Concomitant]
     Active Substance: POTASSIUM CHLORIDE
     Dosage: 5 DF, DAILY (2 DF MORNING, 1 DF MIDDAY AND 2 DF EVENING)
  7. ZITHROMAX [Concomitant]
     Active Substance: AZITHROMYCIN DIHYDRATE
  8. VFEND [Suspect]
     Active Substance: VORICONAZOLE
     Indication: ASPERGILLUS INFECTION
     Dosage: 400 MG, 2X/DAY (AT 400 MG IN THE MORNING AND 400 MG IN THE EVENING)
     Dates: start: 20141118, end: 20141118
  9. TRENTADIL [Concomitant]
     Dosage: 1 DF, 2X/DAY (1DF N THE MORNING AND 1 DF IN THE EVENING)
  10. ALDACTONE 75 [Concomitant]
     Indication: HYPERTENSION
     Dosage: 1 DF, DAILY
  11. INEGY [Concomitant]
     Active Substance: EZETIMIBE\SIMVASTATIN
  12. SALBUMOL [Concomitant]
     Active Substance: ALBUTEROL SULFATE
  13. SOLUPRED 10 [Concomitant]
     Dosage: UNK
  14. HIZENTRA [Concomitant]
     Active Substance: HUMAN IMMUNOGLOBULIN G
     Indication: CONGENITAL HYPOGAMMAGLOBULINAEMIA
     Dosage: 10 G, EVERY 10 DAYS
  15. KESTINLYO [Concomitant]
     Active Substance: EBASTINE
  16. TRIATEC 5 [Concomitant]
     Dosage: 1 DF, 1X/DAY (IN THE MORNING)
  17. SYMBICORT [Concomitant]
     Active Substance: BUDESONIDE\FORMOTEROL FUMARATE DIHYDRATE
     Dosage: 2 TO 3 DF, TWICE DAILY
  18. OROCAL VITAMIN D [Concomitant]
     Active Substance: CALCIUM CARBONATE\VITAMIN D
     Dosage: 1 DF, 2X/DAY (1 DF IN THE MORNING AND 1 DF IN THE EVENING)
  19. COUMADINE [Concomitant]
     Active Substance: WARFARIN SODIUM
     Dosage: 5 MG/6 MG DAILY
  20. VENTOLINE [Concomitant]
     Active Substance: ALBUTEROL

REACTIONS (11)
  - Fatigue [Unknown]
  - Face oedema [Recovered/Resolved]
  - Cough [Not Recovered/Not Resolved]
  - Asthma [Not Recovered/Not Resolved]
  - Blepharitis [Unknown]
  - Pathogen resistance [Unknown]
  - Colour blindness acquired [Recovered/Resolved]
  - Constipation [Unknown]
  - Photopsia [Recovered/Resolved]
  - Arrhythmia [Recovered/Resolved]
  - Vision blurred [Recovered/Resolved]

NARRATIVE: CASE EVENT DATE: 20141118
